FAERS Safety Report 10191974 (Version 1)
Quarter: 2014Q2

REPORT INFORMATION
  Report Type: Spontaneous
  Country: GB (occurrence: None)
  Receive Date: 20140521
  Receipt Date: 20140521
  Transmission Date: 20141212
  Serious: Yes (Other)
  Sender: FDA-Public Use
  Company Number: AUR-APL-2014-05880

PATIENT
  Age: 68 Year
  Sex: Male
  Weight: 81.18 kg

DRUGS (6)
  1. SERTRALINE (SERTRALINE) [Suspect]
     Indication: DEPRESSION
     Route: 048
     Dates: start: 20140411
  2. ASPIRIN (ACETYLSALICYLIC ACID) [Concomitant]
  3. ATORVASTATIN (ATORVASTATIN) [Concomitant]
  4. DOMPERIDONE MALEATE (DOMPERIDONE MALEATE) [Concomitant]
  5. LANSOPRAZOLE (LANSOPRAZOLE) [Concomitant]
  6. PROCORLAN (IVABRADINE HYDROCHLORIDE) [Concomitant]

REACTIONS (5)
  - Feeling abnormal [None]
  - Depressed mood [None]
  - Dysgeusia [None]
  - Head discomfort [None]
  - Product substitution issue [None]
